FAERS Safety Report 4727814-2 (Version None)
Quarter: 2005Q3

REPORT INFORMATION
  Report Type: 
  Country: None (occurrence: None)
  Receive Date: 20050727
  Receipt Date: 20050715
  Transmission Date: 20060218
  Serious: Yes (Death)
  Sender: FDA-Public Use
  Company Number: A-CH2005-10104

PATIENT
  Age: 74 Year
  Sex: Male
  Weight: 80 kg

DRUGS (10)
  1. TRACLEER [Suspect]
     Indication: PULMONARY HYPERTENSION
     Dosage: 125 MG, BID, ORAL
     Route: 048
     Dates: end: 20050627
  2. ACENOCOUMAROL (ACENOCOUMAROL) [Concomitant]
  3. PREDNISONE [Concomitant]
  4. FUROSEMIDE (FUROSEMIDE) [Concomitant]
  5. SPIRONOLACTONE [Concomitant]
  6. NIFEDIPINE [Concomitant]
  7. NEXIUM [Concomitant]
  8. AMARYL (GLIMPEPIRIDE) [Concomitant]
  9. ANDRIOL (TESTOSTERONE UNDECANOATE) [Concomitant]
  10. MEVACOR [Concomitant]

REACTIONS (2)
  - DISEASE PROGRESSION [None]
  - INTERSTITIAL LUNG DISEASE [None]
